FAERS Safety Report 6451563-6 (Version None)
Quarter: 2009Q4

REPORT INFORMATION
  Report Type: 
  Country: None (occurrence: None)
  Receive Date: 20091123
  Receipt Date: 20090612
  Transmission Date: 20100525
  Serious: Yes (Other)
  Sender: FDA-Public Use
  Company Number: US-AMGEN-QUU351645

PATIENT
  Sex: Female
  Weight: 65.4 kg

DRUGS (3)
  1. ENBREL [Suspect]
     Indication: RHEUMATOID ARTHRITIS
     Route: 058
     Dates: start: 20080313, end: 20090612
  2. FOLIC ACID [Concomitant]
     Route: 048
     Dates: start: 20050817
  3. METHOTREXATE [Concomitant]
     Route: 048
     Dates: start: 20050817

REACTIONS (1)
  - MALIGNANT MELANOMA [None]
